FAERS Safety Report 8899062 (Version 1)
Quarter: 2012Q4

REPORT INFORMATION
  Report Type: 
  Country: US (occurrence: US)
  Receive Date: 20121108
  Receipt Date: 20121108
  Transmission Date: 20130627
  Serious: No
  Sender: FDA-Public Use
  Company Number: US-AMGEN-USASP2012035030

PATIENT
  Sex: Female

DRUGS (6)
  1. ENBREL [Suspect]
     Indication: PRODUCT USED FOR UNKNOWN INDICATION
     Dosage: 50 mg, qwk
     Route: 058
  2. METHOTREXATE [Concomitant]
     Dosage: 20 mg, UNK
  3. FOLIC ACID [Concomitant]
     Dosage: 5 mg, UNK
  4. HYDROCHLOROTH [Concomitant]
     Dosage: 25 mg, UNK
  5. VIMOVO [Concomitant]
     Dosage: UNK
  6. AMBIEN CR [Concomitant]
     Dosage: 6.25 mg, UNK

REACTIONS (1)
  - Injection site pain [Unknown]
